FAERS Safety Report 4299348-3 (Version None)
Quarter: 2004Q1

REPORT INFORMATION
  Report Type: 
  Country: None (occurrence: None)
  Receive Date: 20040219
  Receipt Date: 20030804
  Transmission Date: 20041129
  Serious: Yes (Life-Threatening, Other)
  Sender: FDA-Public Use
  Company Number: US-GLAXOSMITHKLINE-A0420123A

PATIENT
  Age: 31 Year
  Sex: Male
  Weight: 102.7 kg

DRUGS (5)
  1. TRIZIVIR [Suspect]
     Indication: HIV INFECTION
     Dosage: 1TAB TWICE PER DAY
     Route: 048
     Dates: start: 20030529, end: 20030731
  2. KALETRA [Concomitant]
     Dosage: 3TAB TWICE PER DAY
     Route: 048
     Dates: start: 20030529
  3. ISONIAZID [Concomitant]
     Dosage: 300MG PER DAY
     Route: 048
  4. MEPRON [Concomitant]
     Dosage: 200MG PER DAY
     Route: 048
  5. RIFABUTIN [Concomitant]
     Dosage: 450MG PER DAY
     Route: 048

REACTIONS (7)
  - ANAEMIA [None]
  - FATIGUE [None]
  - HYPERSENSITIVITY [None]
  - MYALGIA [None]
  - NAUSEA [None]
  - NEUTROPENIA [None]
  - PYREXIA [None]
